FAERS Safety Report 10251890 (Version 1)
Quarter: 2014Q2

REPORT INFORMATION
  Report Type: Spontaneous
  Country: US (occurrence: US)
  Receive Date: 20140623
  Receipt Date: 20140623
  Transmission Date: 20141212
  Serious: No
  Sender: FDA-Public Use
  Company Number: US-AMGEN-USASP2014046041

PATIENT
  Age: 53 Year
  Sex: Female

DRUGS (1)
  1. ENBREL [Suspect]
     Indication: RHEUMATOID ARTHRITIS
     Dosage: 50 MG, QWK
     Route: 065
     Dates: start: 20140515

REACTIONS (5)
  - Seasonal allergy [Not Recovered/Not Resolved]
  - Productive cough [Not Recovered/Not Resolved]
  - Sinus congestion [Not Recovered/Not Resolved]
  - Eye pruritus [Not Recovered/Not Resolved]
  - Cough [Not Recovered/Not Resolved]
